FAERS Safety Report 16224435 (Version 3)
Quarter: 2019Q3

REPORT INFORMATION
  Report Type: Spontaneous
  Country: IT (occurrence: IT)
  Receive Date: 20190422
  Receipt Date: 20190808
  Transmission Date: 20191004
  Serious: Yes (Other)
  Sender: FDA-Public Use
  Company Number: IT-JNJFOC-20190428864

PATIENT
  Age: 69 Year
  Sex: Female
  Weight: 53 kg

DRUGS (1)
  1. TRABECTEDIN [Suspect]
     Active Substance: TRABECTEDIN
     Indication: LEIOMYOSARCOMA
     Route: 042
     Dates: start: 20180802, end: 20190225

REACTIONS (2)
  - Cardiac failure [Recovered/Resolved]
  - Ventricular hypokinesia [Recovered/Resolved]

NARRATIVE: CASE EVENT DATE: 20190329
